FAERS Safety Report 8419558-0 (Version None)
Quarter: 2012Q2

REPORT INFORMATION
  Report Type: 
  Country: None (occurrence: None)
  Receive Date: 20120607
  Receipt Date: 20120525
  Transmission Date: 20120825
  Serious: No
  Sender: FDA-Public Use
  Company Number: US-ASTRAZENECA-2012SE33923

PATIENT
  Age: 69 Year
  Sex: Female

DRUGS (9)
  1. METFORMIN HCL [Concomitant]
  2. LISINOPRIL [Concomitant]
  3. CAPRELSA [Suspect]
     Indication: THYROID CANCER
     Route: 048
  4. CALCIUM, D [Concomitant]
  5. MULTI-VITAMINS [Concomitant]
  6. PROCHLORPERAZINE MALEATE [Concomitant]
  7. ZYRTEC ALLERGY [Concomitant]
  8. ASPIRIN CHILDRENS [Concomitant]
  9. SYNTHROID [Concomitant]

REACTIONS (4)
  - MYALGIA [None]
  - NAUSEA [None]
  - RASH [None]
  - BLOOD PRESSURE INCREASED [None]
